FAERS Safety Report 16335791 (Version 1)
Quarter: 2019Q2

REPORT INFORMATION
  Report Type: Spontaneous
  Country: US (occurrence: US)
  Receive Date: 20190415
  Receipt Date: 20190415
  Transmission Date: 20190711
  Serious: No
  Sender: FDA-Public Use
  Company Number: None

PATIENT
  Age: 65 Year
  Sex: Female

DRUGS (1)
  1. COPAXONE [Suspect]
     Active Substance: GLATIRAMER ACETATE
     Route: 058
     Dates: start: 20140324, end: 20190415

REACTIONS (5)
  - Flushing [None]
  - Abdominal discomfort [None]
  - Palpitations [None]
  - Amnesia [None]
  - Performance status decreased [None]

NARRATIVE: CASE EVENT DATE: 20190401
